FAERS Safety Report 9097871 (Version 6)
Quarter: 2016Q1

REPORT INFORMATION
  Report Type: Spontaneous
  Country: US (occurrence: US)
  Receive Date: 20130212
  Receipt Date: 20160302
  Transmission Date: 20160526
  Serious: Yes (Other)
  Sender: FDA-Public Use
  Company Number: US-009507513-1302USA003525

PATIENT
  Age: 29 Year
  Sex: Female
  Weight: 92.52 kg

DRUGS (2)
  1. IMPLANON [Suspect]
     Active Substance: ETONOGESTREL
     Indication: CONTRACEPTION
     Dosage: 1 DF, UNK
     Route: 059
     Dates: start: 20110304, end: 20130315
  2. IMPLANON [Suspect]
     Active Substance: ETONOGESTREL
     Dosage: 1 ROD
     Route: 059
     Dates: start: 201301

REACTIONS (9)
  - Bipolar disorder [Unknown]
  - Drug dose omission [Unknown]
  - Complication associated with device [Recovered/Resolved]
  - General anaesthesia [Unknown]
  - Complication associated with device [Not Recovered/Not Resolved]
  - Unintended pregnancy [Unknown]
  - Device dislocation [Recovered/Resolved]
  - Drug ineffective [Unknown]
  - Device difficult to use [Recovered/Resolved]

NARRATIVE: CASE EVENT DATE: 20130128
